FAERS Safety Report 9283736 (Version 1)
Quarter: 2013Q2

REPORT INFORMATION
  Report Type: Spontaneous
  Country: DE (occurrence: DE)
  Receive Date: 20130510
  Receipt Date: 20130510
  Transmission Date: 20140414
  Serious: Yes (Disabling, Congenital Anomaly, Other)
  Sender: FDA-Public Use
  Company Number: DE-TEVA-401890GER

PATIENT
  Age: 0 Year
  Sex: Male

DRUGS (4)
  1. AMITRIPTYLIN [Suspect]
     Route: 064
  2. PARACETAMOL [Concomitant]
     Route: 064
  3. AMOXICILLIN [Concomitant]
     Route: 064
  4. FEMIBION [Concomitant]
     Route: 064

REACTIONS (7)
  - Small for dates baby [Not Recovered/Not Resolved]
  - Hypoacusis [Not Recovered/Not Resolved]
  - Accessory auricle [Not Recovered/Not Resolved]
  - Microgenia [Not Recovered/Not Resolved]
  - Congenital aural fistula [Unknown]
  - Torticollis [Unknown]
  - Coordination abnormal [Unknown]
